FAERS Safety Report 25930737 (Version 1)
Quarter: 2025Q4

REPORT INFORMATION
  Report Type: Spontaneous
  Country: EU (occurrence: None)
  Receive Date: 20251016
  Receipt Date: 20251016
  Transmission Date: 20260118
  Serious: Yes (Disabling)
  Sender: FDA-CTU
  Company Number: None

PATIENT
  Age: 20 Year
  Sex: Male
  Weight: 80 kg

DRUGS (1)
  1. CITALOPRAM [Suspect]
     Active Substance: CITALOPRAM
     Indication: Depression
     Dosage: OTHER QUANTITY : 2 TABLET(S);?
     Route: 048

REACTIONS (11)
  - Skin burning sensation [None]
  - Tinnitus [None]
  - Vision blurred [None]
  - Vitreous floaters [None]
  - Cognitive disorder [None]
  - Apathy [None]
  - Emotional poverty [None]
  - Dissociation [None]
  - Penis disorder [None]
  - Impaired quality of life [None]
  - Sexual dysfunction [None]

NARRATIVE: CASE EVENT DATE: 20081107
